FAERS Safety Report 5732186-0 (Version None)
Quarter: 2008Q2

REPORT INFORMATION
  Report Type: 
  Country: None (occurrence: None)
  Receive Date: 20080508
  Receipt Date: 20080430
  Transmission Date: 20081010
  Serious: Yes (Other)
  Sender: FDA-Public Use
  Company Number: GB-PFIZER INC-2008034788

PATIENT
  Age: 23 Year
  Sex: Female

DRUGS (1)
  1. CHANTIX [Suspect]
     Indication: SMOKING CESSATION THERAPY
     Route: 048
     Dates: start: 20080312, end: 20080330

REACTIONS (4)
  - DYSPHAGIA [None]
  - EYELID OEDEMA [None]
  - PRURITUS GENERALISED [None]
  - RASH [None]
